FAERS Safety Report 9228610 (Version 2)
Quarter: 2013Q2

REPORT INFORMATION
  Report Type: Spontaneous
  Country: DE (occurrence: DE)
  Receive Date: 20130412
  Receipt Date: 20130430
  Transmission Date: 20140414
  Serious: Yes (Hospitalization)
  Sender: FDA-Public Use
  Company Number: DE-GLAXOSMITHKLINE-D0079214A

PATIENT
  Age: 45 Year
  Sex: Female
  Weight: 68 kg

DRUGS (2)
  1. BENLYSTA [Suspect]
     Indication: SYSTEMIC LUPUS ERYTHEMATOSUS
     Dosage: 680MG PER DAY
     Route: 065
     Dates: start: 20120822, end: 20130104
  2. PREDNISOLON [Concomitant]
     Indication: SYSTEMIC LUPUS ERYTHEMATOSUS
     Dosage: 5MG PER DAY
     Route: 065
     Dates: start: 201002, end: 201302

REACTIONS (9)
  - Vasculitis [Unknown]
  - Superinfection bacterial [Unknown]
  - Pyoderma gangrenosum [Not Recovered/Not Resolved]
  - Arthralgia [Unknown]
  - Skin ulcer [Unknown]
  - Arteriosclerosis [Unknown]
  - Synovial cyst [Unknown]
  - Pain [Unknown]
  - Aphthous stomatitis [Unknown]
